FAERS Safety Report 9121517 (Version 1)
Quarter: 2013Q1

REPORT INFORMATION
  Report Type: Spontaneous
  Country: US (occurrence: US)
  Receive Date: 20130108
  Receipt Date: 20130108
  Transmission Date: 20140127
  Serious: Yes (Other)
  Sender: FDA-Public Use
  Company Number: US-RB-048009-12

PATIENT
  Sex: Male

DRUGS (1)
  1. DELSYM [Suspect]
     Indication: DRUG ABUSE
     Dosage: TOOK A WHOLE BOTTLE
     Route: 048
     Dates: start: 20121226

REACTIONS (2)
  - Drug abuse [Not Recovered/Not Resolved]
  - Unevaluable event [Not Recovered/Not Resolved]
